FAERS Safety Report 4863108-2 (Version None)
Quarter: 2005Q4

REPORT INFORMATION
  Report Type: 
  Country: None (occurrence: None)
  Receive Date: 20051221
  Receipt Date: 20051214
  Transmission Date: 20060501
  Serious: Yes (Hospitalization)
  Sender: FDA-Public Use
  Company Number: FR-MERCK-0512FRA00058

PATIENT
  Age: 78 Year
  Sex: Male

DRUGS (10)
  1. VIOXX [Suspect]
     Indication: BACK PAIN
     Route: 048
     Dates: start: 20040626, end: 20040701
  2. AMIODARONE [Concomitant]
     Route: 048
  3. FLUINDIONE [Concomitant]
     Indication: THROMBOSIS PROPHYLAXIS
     Route: 048
  4. OMEPRAZOLE [Concomitant]
     Route: 048
  5. BUFLOMEDIL HYDROCHLORIDE [Concomitant]
     Route: 048
  6. ALLOPURINOL [Concomitant]
     Indication: HYPERURICAEMIA
     Route: 048
  7. FOSINOPRIL SODIUM [Concomitant]
     Indication: CARDIAC FAILURE CONGESTIVE
     Route: 048
  8. NICORANDIL [Concomitant]
     Indication: ISCHAEMIC CARDIOMYOPATHY
     Route: 048
  9. ALBUTEROL SULFATE AND IPRATROPIUM BROMIDE [Concomitant]
     Indication: CHRONIC RESPIRATORY FAILURE
     Route: 055
  10. FUROSEMIDE [Concomitant]
     Indication: CARDIAC FAILURE CONGESTIVE
     Route: 048

REACTIONS (4)
  - CARDIAC FAILURE CONGESTIVE [None]
  - CONDITION AGGRAVATED [None]
  - HYPONATRAEMIA [None]
  - RENAL FAILURE [None]
